FAERS Safety Report 5165614-2 (Version None)
Quarter: 2006Q4

REPORT INFORMATION
  Report Type: 
  Country: None (occurrence: None)
  Receive Date: 20061206
  Receipt Date: 20061130
  Transmission Date: 20070319
  Serious: Yes (Hospitalization)
  Sender: FDA-Public Use
  Company Number: IT-BRISTOL-MYERS SQUIBB COMPANY-13597547

PATIENT
  Age: 63 Year
  Sex: Female

DRUGS (3)
  1. COUMADIN [Suspect]
     Indication: ATRIAL FIBRILLATION
     Dates: start: 20060101, end: 20061101
  2. ACESISTEM [Concomitant]
  3. LOPRESSOR [Concomitant]

REACTIONS (3)
  - HYPERTENSION [None]
  - QUADRIPARESIS [None]
  - SUBDURAL HAEMATOMA [None]
